FAERS Safety Report 8197369-1 (Version None)
Quarter: 2012Q1

REPORT INFORMATION
  Report Type: 
  Country: None (occurrence: None)
  Receive Date: 20120309
  Receipt Date: 20120302
  Transmission Date: 20120608
  Serious: Yes (Other)
  Sender: FDA-Public Use
  Company Number: US-BAYER-2012-008435

PATIENT
  Sex: Female
  Weight: 54.422 kg

DRUGS (4)
  1. HYDROXYCHLOROQUINE SULFATE [Concomitant]
     Indication: SYSTEMIC LUPUS ERYTHEMATOSUS
     Dosage: 200 MG, BID
  2. ACCURETIC [Concomitant]
     Indication: ANTICOAGULANT THERAPY
     Dosage: DAILY DOSE 325 MG
     Route: 048
  3. NIFEDIPINE [Suspect]
     Indication: RAYNAUD'S PHENOMENON
  4. NIFEDIPINE [Suspect]
     Indication: CARDIOVASCULAR DISORDER

REACTIONS (2)
  - ADVERSE EVENT [None]
  - HEART RATE INCREASED [None]
